FAERS Safety Report 8354882-1 (Version None)
Quarter: 2012Q2

REPORT INFORMATION
  Report Type: 
  Country: None (occurrence: None)
  Receive Date: 20120511
  Receipt Date: 20120501
  Transmission Date: 20120825
  Serious: Yes (Other)
  Sender: FDA-Public Use
  Company Number: US-EISAI INC-E3810-05491-SPO-US

PATIENT
  Sex: Male

DRUGS (1)
  1. ACIPHEX [Suspect]
     Dosage: UNKNOWN
     Route: 048

REACTIONS (1)
  - HEARING IMPAIRED [None]
